FAERS Safety Report 17145750 (Version 2)
Quarter: 2019Q4

REPORT INFORMATION
  Report Type: Spontaneous
  Country: US (occurrence: US)
  Receive Date: 20191212
  Receipt Date: 20191216
  Transmission Date: 20200122
  Serious: No
  Sender: FDA-Public Use
  Company Number: US-BIOGEN-2019BI00816600

PATIENT
  Sex: Female

DRUGS (1)
  1. TECFIDERA [Suspect]
     Active Substance: DIMETHYL FUMARATE
     Indication: MULTIPLE SCLEROSIS
     Route: 065
     Dates: start: 20191204

REACTIONS (10)
  - Neurological symptom [Not Recovered/Not Resolved]
  - Motor dysfunction [Unknown]
  - Cough [Unknown]
  - Weight bearing difficulty [Unknown]
  - Somnolence [Unknown]
  - Fatigue [Unknown]
  - Feeling abnormal [Unknown]
  - Hypoaesthesia oral [Not Recovered/Not Resolved]
  - Hemiparesis [Unknown]
  - Loss of control of legs [Unknown]
